FAERS Safety Report 10517630 (Version 1)
Quarter: 2014Q4

REPORT INFORMATION
  Report Type: Spontaneous
  Country: US (occurrence: US)
  Receive Date: 20141014
  Receipt Date: 20141014
  Transmission Date: 20150528
  Serious: No
  Sender: FDA-Public Use
  Company Number: US-GLAXOSMITHKLINE-A1089467A

PATIENT
  Age: 78 Year
  Sex: Female

DRUGS (6)
  1. PROAIR HFA [Concomitant]
     Active Substance: ALBUTEROL SULFATE
  2. COZAAR [Concomitant]
     Active Substance: LOSARTAN POTASSIUM
  3. FLUID [Concomitant]
     Active Substance: UNSPECIFIED INGREDIENT
  4. UNKNOWN [Concomitant]
     Active Substance: UNSPECIFIED INGREDIENT
  5. ANORO ELLIPTA [Suspect]
     Active Substance: UMECLIDINIUM BROMIDE\VILANTEROL TRIFENATATE
     Indication: PRODUCT USED FOR UNKNOWN INDICATION
     Route: 055
     Dates: start: 20140910, end: 20140916
  6. COUMADIN [Concomitant]
     Active Substance: WARFARIN SODIUM

REACTIONS (3)
  - Dysgeusia [Recovered/Resolved]
  - Cough [Recovered/Resolved]
  - Extra dose administered [Unknown]

NARRATIVE: CASE EVENT DATE: 20140910
